FAERS Safety Report 8538702-8 (Version None)
Quarter: 2012Q3

REPORT INFORMATION
  Report Type: 
  Country: None (occurrence: None)
  Receive Date: 20120726
  Receipt Date: 20120717
  Transmission Date: 20120928
  Serious: Yes (Hospitalization, Other)
  Sender: FDA-Public Use
  Company Number: FR-VERTEX PHARMACEUTICALS INC.-AE-2011-000454

PATIENT
  Sex: Female
  Weight: 82 kg

DRUGS (18)
  1. PEGINTERFERON ALFA-2A [Concomitant]
     Indication: HEPATITIS C
     Route: 058
     Dates: start: 20110523
  2. RIBAVIRIN [Concomitant]
     Route: 048
     Dates: start: 20110913, end: 20110913
  3. ALDACTAZINE [Concomitant]
     Indication: HYPERTENSION
  4. LEVEMIR [Concomitant]
     Indication: DIABETES MELLITUS
  5. CYTOMEL [Concomitant]
     Indication: HYPOTHYROIDISM
  6. NEORECORMON [Concomitant]
     Dates: start: 20110823
  7. PEGINTERFERON ALFA-2A [Concomitant]
     Route: 058
     Dates: start: 20110822
  8. PROPRANOLOL [Concomitant]
     Indication: VARICES OESOPHAGEAL
  9. CLINOMEL [Concomitant]
     Indication: PRODUCT USED FOR UNKNOWN INDICATION
  10. RIBAVIRIN [Concomitant]
     Route: 048
     Dates: start: 20110822, end: 20110912
  11. VX-950 [Suspect]
     Indication: HEPATITIS C
     Route: 048
     Dates: start: 20110523, end: 20110815
  12. RIBAVIRIN [Concomitant]
     Route: 048
     Dates: start: 20110718
  13. BETAMETHASONE [Concomitant]
     Indication: PRODUCT USED FOR UNKNOWN INDICATION
  14. POTASSIUM CHLORIDE [Concomitant]
     Indication: HYPOKALAEMIA
  15. PANTOPRAZOLE [Concomitant]
     Indication: GASTROOESOPHAGEAL REFLUX DISEASE
  16. NEORECORMON [Concomitant]
     Indication: ANAEMIA
  17. LASIX [Concomitant]
     Indication: OEDEMA PERIPHERAL
     Dates: start: 20110822
  18. RIBAVIRIN [Concomitant]
     Indication: HEPATITIS C
     Route: 048
     Dates: start: 20110523

REACTIONS (6)
  - CONFUSIONAL STATE [None]
  - ASTHENIA [None]
  - LEUKOPENIA [None]
  - THROMBOCYTOPENIA [None]
  - ANAEMIA [None]
  - TREMOR [None]
